FAERS Safety Report 5533068-X (Version None)
Quarter: 2007Q4

REPORT INFORMATION
  Report Type: 
  Country: None (occurrence: None)
  Receive Date: 20071204
  Receipt Date: 20071123
  Transmission Date: 20080405
  Serious: Yes (Death)
  Sender: FDA-Public Use
  Company Number: B0494910A

PATIENT
  Age: 50 Year
  Sex: Male

DRUGS (3)
  1. PARACETAMOL [Suspect]
     Route: 065
  2. NITRENDIPINE [Suspect]
     Route: 065
  3. TRIAZOLAM [Suspect]
     Route: 065

REACTIONS (1)
  - DRUG TOXICITY [None]
